FAERS Safety Report 23716417 (Version 2)
Quarter: 2024Q4

REPORT INFORMATION
  Report Type: Spontaneous
  Country: US (occurrence: US)
  Receive Date: 20240408
  Receipt Date: 20241106
  Transmission Date: 20250114
  Serious: No
  Sender: UCB
  Company Number: US-UCBSA-2023059551

PATIENT
  Sex: Female

DRUGS (11)
  1. VIMPAT [Suspect]
     Active Substance: LACOSAMIDE
     Indication: Epilepsy
     Dosage: UNK
     Route: 048
     Dates: start: 20111026
  2. BRIVARACETAM [Suspect]
     Active Substance: BRIVARACETAM
     Indication: Product used for unknown indication
     Dosage: UNK
     Dates: start: 20131112
  3. LYRICA [Concomitant]
     Active Substance: PREGABALIN
     Indication: Neuropathy peripheral
     Dosage: 100 MILLIGRAM, 2X/DAY (BID)
  4. NOVOLOG [Concomitant]
     Active Substance: INSULIN ASPART
     Indication: Diabetes mellitus
     Dosage: 20UNITS BEFORE EACH MEAL
  5. LANTUS SOLOSTAR [Concomitant]
     Active Substance: INSULIN GLARGINE
     Indication: Diabetes mellitus
     Dosage: 75UNITS/NIGHT
  6. ATORVASTATIN [Concomitant]
     Active Substance: ATORVASTATIN
     Indication: Lipids
     Dosage: 40 MILLIGRAM, ONCE DAILY (QD) LIPIDS
  7. LOSARTAN [Concomitant]
     Active Substance: LOSARTAN
     Indication: Renal impairment
     Dosage: 25 MILLIGRAM, ONCE DAILY (QD)
  8. SERTRALINE HYDROCHLORIDE [Concomitant]
     Active Substance: SERTRALINE HYDROCHLORIDE
     Indication: Obsessive-compulsive disorder
     Dosage: 100 MILLIGRAM/ NIGHT
  9. VITAMIN D3 [Concomitant]
     Active Substance: CHOLECALCIFEROL
     Indication: Lipids
     Dosage: 2000 INTERNATIONAL UNIT PER DAY (OLIVE OIL CARRIER OIL) (LIPIDS)
  10. MINERALS\VITAMINS [Concomitant]
     Active Substance: MINERALS\VITAMINS
     Indication: Nutritional supplementation
     Dosage: COMPLETE MULTIVITAMIN/MULTIMINERAL ADULTS 50+
  11. OMEGA-3-ACID ETHYL ESTER [Concomitant]
     Active Substance: OMEGA-3-ACID ETHYL ESTERS
     Indication: Product used for unknown indication
     Dosage: 1 GRAM, 2X/DAY (BID)

REACTIONS (1)
  - Malaise [Not Recovered/Not Resolved]
